FAERS Safety Report 8239707-7 (Version None)
Quarter: 2012Q1

REPORT INFORMATION
  Report Type: 
  Country: None (occurrence: None)
  Receive Date: 20120328
  Receipt Date: 20120308
  Transmission Date: 20120608
  Serious: Yes (Hospitalization)
  Sender: FDA-Public Use
  Company Number: PHHY2012PL022761

PATIENT
  Sex: Male
  Weight: 83 kg

DRUGS (6)
  1. ATORIS [Concomitant]
     Indication: HYPERLIPIDAEMIA
     Dosage: 40 MG, UNK
     Dates: start: 20110501
  2. MYCOPHENOLIC ACID [Suspect]
     Dosage: 1080 MG, UNK
     Route: 048
     Dates: start: 20111117
  3. PREDNISONE [Concomitant]
     Indication: RENAL TRANSPLANT
     Dosage: 20 MG, UNK
     Dates: start: 20110415
  4. MYCOPHENOLIC ACID [Suspect]
     Dosage: 720 MG, UNK
     Route: 048
     Dates: start: 20110722, end: 20111116
  5. PROGRAF [Concomitant]
     Indication: RENAL TRANSPLANT
     Dosage: 10 MG, UNK
  6. MYCOPHENOLIC ACID [Suspect]
     Indication: RENAL TRANSPLANT
     Dosage: 1440 MG
     Route: 048
     Dates: start: 20110411

REACTIONS (2)
  - BLOOD CREATININE INCREASED [None]
  - URETERIC STENOSIS [None]
